FAERS Safety Report 8707862 (Version 4)
Quarter: 2012Q4

REPORT INFORMATION
  Report Type: 
  Country: US (occurrence: US)
  Receive Date: 20120806
  Receipt Date: 20121022
  Transmission Date: 20130627
  Serious: Yes (Other)
  Sender: FDA-Public Use
  Company Number: US-PFIZER INC-2012187809

PATIENT
  Age: 70 Year
  Sex: Female
  Weight: 91 kg

DRUGS (6)
  1. TIKOSYN [Suspect]
     Indication: ATRIAL FIBRILLATION
     Dosage: UNK
     Route: 048
     Dates: start: 2011
  2. TIKOSYN [Suspect]
     Dosage: 250 ug, 2x/day
     Route: 048
     Dates: start: 2012
  3. TIKOSYN [Suspect]
     Dosage: 500 ug, 2x/day
     Route: 048
  4. DILTIAZEM [Concomitant]
     Indication: ATRIAL FIBRILLATION
     Dosage: 120 mg, daily
  5. COUMADIN [Concomitant]
     Indication: ANTICOAGULANT THERAPY
     Dosage: UNK, daily
  6. HYDROCODONE W/ACETAMINOPHEN [Concomitant]
     Indication: PAIN
     Dosage: 10/300 mg, 4x/day

REACTIONS (13)
  - Kidney infection [Not Recovered/Not Resolved]
  - Urinary tract infection [Not Recovered/Not Resolved]
  - Drug ineffective [Unknown]
  - Heart rate irregular [Not Recovered/Not Resolved]
  - Rash pruritic [Not Recovered/Not Resolved]
  - Lip discolouration [Not Recovered/Not Resolved]
  - Fatigue [Not Recovered/Not Resolved]
  - Diarrhoea [Unknown]
  - Headache [Recovered/Resolved]
  - Decreased appetite [Unknown]
  - Palpitations [Unknown]
  - Hypertension [Unknown]
  - Abnormal behaviour [Unknown]
